FAERS Safety Report 21007062 (Version 1)
Quarter: 2022Q2

REPORT INFORMATION
  Report Type: Spontaneous
  Country: FR (occurrence: FR)
  Receive Date: 20220625
  Receipt Date: 20220625
  Transmission Date: 20220721
  Serious: Yes (Life-Threatening)
  Sender: FDA-Public Use
  Company Number: None

PATIENT
  Age: 68 Year
  Sex: Male
  Weight: 81 kg

DRUGS (11)
  1. CARBOPLATIN [Suspect]
     Active Substance: CARBOPLATIN
     Indication: Metastatic bronchial carcinoma
     Dosage: C4
     Route: 042
     Dates: start: 20220316, end: 20220316
  2. ETOPOSIDE [Suspect]
     Active Substance: ETOPOSIDE
     Indication: Metastatic bronchial carcinoma
     Dosage: C4
     Route: 042
     Dates: start: 20220316, end: 20220318
  3. DURVALUMAB [Suspect]
     Active Substance: DURVALUMAB
     Indication: Metastatic bronchial carcinoma
     Dosage: C4
     Route: 042
     Dates: start: 20220316, end: 20220316
  4. AMLODIPINE BESYLATE [Concomitant]
     Active Substance: AMLODIPINE BESYLATE
  5. ALPRAZOLAM [Concomitant]
     Active Substance: ALPRAZOLAM
  6. METFORMIN HYDROCHLORIDE [Concomitant]
     Active Substance: METFORMIN HYDROCHLORIDE
  7. RISPERIDONE [Concomitant]
     Active Substance: RISPERIDONE
  8. SYMBICORT [Concomitant]
     Active Substance: BUDESONIDE\FORMOTEROL FUMARATE DIHYDRATE
     Dosage: 200/6 MICROGRAMS PER DOSE, SUSPENSION FOR?INHALATION IN PRESSURIZED BOTTLE
  9. TELMISARTAN [Concomitant]
     Active Substance: TELMISARTAN
     Dates: end: 20220325
  10. VENTOLIN [Concomitant]
     Active Substance: ALBUTEROL SULFATE
     Dosage: SUSPENSION FOR INHALATION IN?PRESSURIZED BOTTLE
  11. ZYPADHERA [Concomitant]
     Active Substance: OLANZAPINE PAMOATE
     Dosage: POWDER AND SOLVENT FOR PROLONGED-RELEASE?SUSPENSION FOR INJECTION

REACTIONS (1)
  - Oropharyngeal oedema [Recovering/Resolving]

NARRATIVE: CASE EVENT DATE: 20220424
